FAERS Safety Report 20558393 (Version 1)
Quarter: 2022Q1

REPORT INFORMATION
  Report Type: Spontaneous
  Country: CA (occurrence: CA)
  Receive Date: 20220307
  Receipt Date: 20220307
  Transmission Date: 20220423
  Serious: Yes (Other)
  Sender: FDA-Public Use
  Company Number: None

PATIENT
  Age: 65 Year

DRUGS (3)
  1. OXALIPLATIN [Suspect]
     Active Substance: OXALIPLATIN
     Indication: Product used for unknown indication
     Dosage: INJECTION SINGLE USE VIAL
     Route: 042
  2. IRINOTECAN [Concomitant]
     Active Substance: IRINOTECAN
     Route: 042
  3. LEUCOVORIN [Concomitant]
     Active Substance: LEUCOVORIN

REACTIONS (5)
  - Dizziness [Recovered/Resolved]
  - Muscle spasms [Recovered/Resolved]
  - Oral discomfort [Recovered/Resolved]
  - Oral mucosal erythema [Recovered/Resolved]
  - Paraesthesia [Recovered/Resolved]
